FAERS Safety Report 11239384 (Version 1)
Quarter: 2015Q3

REPORT INFORMATION
  Report Type: Report from Study
  Country: CA (occurrence: None)
  Receive Date: 20150701
  Receipt Date: 20150701
  Transmission Date: 20151125
  Serious: Yes (Hospitalization, Other)
  Sender: FDA-Public Use
  Company Number: 2014FE03411

PATIENT
  Age: 65 Year
  Sex: Male

DRUGS (5)
  1. BIOMALT MULTIVITAMIN (RIBOFLAVIN) [Concomitant]
  2. ASPIRIN. [Concomitant]
     Active Substance: ASPIRIN
  3. DEGARELIX (DEGARELIX) POWDER AND SOLVENT FOR SOLUTION FOR INJECTION [Suspect]
     Active Substance: DEGARELIX
     Indication: PROSTATE CANCER
     Dosage: 80 MG, MONTHLY, FORMULATION: INJECTION, SUBCUTANEOUS
     Route: 058
     Dates: start: 20140422
  4. ROSUVASTATIN [Concomitant]
     Active Substance: ROSUVASTATIN
  5. COVERSYL (PERINDOPRIL) [Concomitant]
     Active Substance: PERINDOPRIL

REACTIONS (8)
  - Blindness unilateral [None]
  - Pain in extremity [None]
  - Rash [None]
  - Prostatic specific antigen increased [None]
  - Grip strength decreased [None]
  - Unevaluable event [None]
  - Pain [None]
  - Hypoaesthesia [None]

NARRATIVE: CASE EVENT DATE: 20140422
